FAERS Safety Report 13534261 (Version 1)
Quarter: 2017Q2

REPORT INFORMATION
  Report Type: Spontaneous
  Country: AU (occurrence: AU)
  Receive Date: 20170510
  Receipt Date: 20170510
  Transmission Date: 20170830
  Serious: Yes (Hospitalization, Other)
  Sender: FDA-Public Use
  Company Number: AU-BRISTOL-MYERS SQUIBB COMPANY-BMS-2017-038835

PATIENT
  Age: 31 Year
  Sex: Female

DRUGS (1)
  1. METFORMIN HYDROCHLORIDE. [Suspect]
     Active Substance: METFORMIN HYDROCHLORIDE
     Indication: GESTATIONAL DIABETES
     Dosage: UNK
     Route: 065

REACTIONS (5)
  - Maternal exposure during pregnancy [Recovered/Resolved]
  - Blood pressure increased [Unknown]
  - Off label use [Unknown]
  - Haemorrhage intracranial [Recovering/Resolving]
  - Live birth [Unknown]
